FAERS Safety Report 8158857-7 (Version None)
Quarter: 2012Q1

REPORT INFORMATION
  Report Type: 
  Country: None (occurrence: None)
  Receive Date: 20120223
  Receipt Date: 20120214
  Transmission Date: 20120608
  Serious: Yes (Hospitalization)
  Sender: FDA-Public Use
  Company Number: NL-PFIZER INC-2012039132

PATIENT
  Age: 57 Year
  Sex: Female
  Weight: 72 kg

DRUGS (11)
  1. PAROXETINE [Concomitant]
  2. EXEMESTANE [Suspect]
     Indication: BREAST CANCER
     Dosage: 25 MG, 1X/DAY
     Route: 048
  3. DIGOXIN [Concomitant]
  4. EPLERENONE [Concomitant]
  5. SLOW-K [Concomitant]
  6. BUMETANIDE [Concomitant]
  7. CARVEDILOL [Concomitant]
  8. SPIRIVA [Concomitant]
  9. ACENOCOUMAROL [Concomitant]
  10. PERINDOPRIL [Concomitant]
  11. BECLOMETHASONE DIPROPIONATE [Concomitant]

REACTIONS (2)
  - PNEUMONIA [None]
  - PYELONEPHRITIS [None]
